FAERS Safety Report 7283630-1 (Version None)
Quarter: 2011Q1

REPORT INFORMATION
  Report Type: 
  Country: None (occurrence: None)
  Receive Date: 20110209
  Receipt Date: 20110203
  Transmission Date: 20110831
  Serious: Yes (Other)
  Sender: FDA-Public Use
  Company Number: B0698419A

PATIENT
  Sex: Male

DRUGS (2)
  1. CODEINE SULFATE [Concomitant]
     Route: 048
  2. RELENZA [Suspect]
     Indication: INFLUENZA
     Dosage: 4IUAX PER DAY
     Route: 055
     Dates: start: 20110129, end: 20110130

REACTIONS (1)
  - HALLUCINATION [None]
